FAERS Safety Report 17480036 (Version 3)
Quarter: 2020Q1

REPORT INFORMATION
  Report Type: Spontaneous
  Country: US (occurrence: US)
  Receive Date: 20200228
  Receipt Date: 20200324
  Transmission Date: 20200409
  Serious: Yes (Hospitalization, Other)
  Sender: FDA-Public Use
  Company Number: US-VIFOR (INTERNATIONAL) INC.-VIT-2020-03942

PATIENT
  Age: 74 Year
  Sex: Female
  Weight: 68.7 kg

DRUGS (29)
  1. AMARYL [Concomitant]
     Active Substance: GLIMEPIRIDE
     Route: 048
  2. GLUCAGEN [Concomitant]
     Active Substance: GLUCAGON HYDROCHLORIDE
     Route: 058
  3. NORVASC [Concomitant]
     Active Substance: AMLODIPINE BESYLATE
     Route: 048
  4. LIPITOR [Concomitant]
     Active Substance: ATORVASTATIN CALCIUM
     Route: 048
  5. FERROUS SULFATE. [Concomitant]
     Active Substance: FERROUS SULFATE
     Dosage: WITH BREAKFAST
     Route: 048
  6. DESYREL [Concomitant]
     Active Substance: TRAZODONE HYDROCHLORIDE
  7. PLAVIX [Concomitant]
     Active Substance: CLOPIDOGREL BISULFATE
     Route: 048
     Dates: start: 20200201
  8. LANTUS [Concomitant]
     Active Substance: INSULIN GLARGINE
     Dosage: UNDER SKIN EVERY NIGHT
  9. LANTUS [Concomitant]
     Active Substance: INSULIN GLARGINE
     Route: 058
  10. ZOLOFT [Concomitant]
     Active Substance: SERTRALINE HYDROCHLORIDE
     Route: 048
     Dates: start: 20200131
  11. PERICOLACE [Concomitant]
     Route: 048
  12. VELTASSA [Suspect]
     Active Substance: PATIROMER
     Indication: HYPERKALAEMIA
     Route: 048
     Dates: start: 20200130
  13. GLYCOLAX [Concomitant]
     Active Substance: POLYETHYLENE GLYCOL 3350
     Route: 048
  14. TYLENOL [Concomitant]
     Active Substance: ACETAMINOPHEN
     Route: 048
  15. TOPROL XL [Concomitant]
     Active Substance: METOPROLOL SUCCINATE
     Route: 048
  16. LIPITOR [Concomitant]
     Active Substance: ATORVASTATIN CALCIUM
     Route: 048
     Dates: start: 20200131
  17. LEVOTHROID [Concomitant]
     Active Substance: LEVOTHYROXINE SODIUM
     Route: 048
  18. ZOLOFT [Concomitant]
     Active Substance: SERTRALINE HYDROCHLORIDE
     Route: 048
  19. DEXTROSE. [Concomitant]
     Active Substance: DEXTROSE
     Route: 042
  20. MELATONIN [Concomitant]
     Active Substance: MELATONIN
     Route: 048
  21. ZOFRAN [Concomitant]
     Active Substance: ONDANSETRON HYDROCHLORIDE
     Route: 042
     Dates: start: 20200131
  22. ZOFRAN [Concomitant]
     Active Substance: ONDANSETRON HYDROCHLORIDE
     Route: 048
  23. ASPIRIN. [Concomitant]
     Active Substance: ASPIRIN
     Route: 048
  24. COZAAR [Concomitant]
     Active Substance: LOSARTAN POTASSIUM
     Route: 048
  25. ZOCOR [Concomitant]
     Active Substance: SIMVASTATIN
     Dosage: EVERY NIGHT
     Route: 048
  26. DEXTROSE. [Concomitant]
     Active Substance: DEXTROSE
     Route: 042
  27. HUMALOG [Concomitant]
     Active Substance: INSULIN LISPRO
     Route: 058
     Dates: start: 20200131
  28. DEFINITY [Concomitant]
     Active Substance: PERFLUTREN
     Route: 042
     Dates: start: 20200131
  29. HEPARIN [Concomitant]
     Active Substance: HEPARIN SODIUM
     Dates: start: 20200131

REACTIONS (16)
  - Cough [Recovering/Resolving]
  - Dyspnoea [Recovered/Resolved]
  - Head injury [Unknown]
  - Chest discomfort [Unknown]
  - Blood pressure systolic increased [Unknown]
  - Acute respiratory failure [Unknown]
  - Back pain [Recovered/Resolved]
  - Feeling abnormal [Unknown]
  - Influenza [Unknown]
  - Pain [Unknown]
  - Headache [Unknown]
  - Wheezing [Recovering/Resolving]
  - Acute myocardial infarction [Recovered/Resolved]
  - Oropharyngeal pain [Unknown]
  - Chronic obstructive pulmonary disease [Unknown]
  - Chest pain [Recovered/Resolved]

NARRATIVE: CASE EVENT DATE: 2020
